FAERS Safety Report 6970597-6 (Version None)
Quarter: 2010Q3

REPORT INFORMATION
  Report Type: 
  Country: None (occurrence: None)
  Receive Date: 20100908
  Receipt Date: 20100825
  Transmission Date: 20110219
  Serious: Yes (Hospitalization)
  Sender: FDA-Public Use
  Company Number: PHHY2010JP56465

PATIENT
  Age: 72 Year
  Sex: Male
  Weight: 53 kg

DRUGS (15)
  1. GLEEVEC [Suspect]
     Indication: GASTROINTESTINAL STROMAL TUMOUR
     Dosage: 400 MG, QD
     Route: 048
     Dates: start: 20100618, end: 20100701
  2. PARIET [Suspect]
     Indication: ABDOMINAL PAIN UPPER
     Dosage: 10 MG, DAILY
     Route: 048
     Dates: start: 20091221, end: 20100701
  3. GLYSENNID [Concomitant]
     Dosage: UNK
     Route: 048
  4. MAGMITT [Concomitant]
     Dosage: UNK
     Route: 048
  5. FLUMETHOLON [Concomitant]
     Indication: EYE DISCHARGE
     Dosage: UNK
     Route: 047
     Dates: start: 20100702
  6. FLUMETHOLON [Concomitant]
     Indication: CONJUNCTIVAL HYPERAEMIA
  7. SOL-MELCORT [Concomitant]
     Dosage: 500 MG, UNK
     Dates: start: 20100702
  8. RINDERON [Concomitant]
     Dosage: UNK
     Route: 061
     Dates: start: 20100703
  9. PREDNISOLONE [Concomitant]
     Dosage: 5 MG, 8 TABLETS DAILY
     Dates: start: 20100705
  10. PREDNISOLONE [Concomitant]
     Dosage: 5 MG, 6 TABLETS DAILY
     Dates: start: 20100709
  11. PREDNISOLONE [Concomitant]
     Dosage: 5 MG, 4 TABLETS DAILY
  12. PREDNISOLONE [Concomitant]
     Dosage: 5 MG, 2 TABLETS DAILY
     Dates: start: 20100713
  13. PREDNISOLONE [Concomitant]
     Dosage: 5 MG, 1 TABLET DAILY
     Dates: start: 20100725
  14. ANTEBATE [Concomitant]
     Indication: PRURITUS
     Dosage: UNK
     Route: 061
     Dates: start: 20100706
  15. ALESION [Concomitant]
     Dosage: 20 MG, QD
     Route: 061
     Dates: start: 20100706, end: 20100812

REACTIONS (7)
  - CONJUNCTIVAL HYPERAEMIA [None]
  - ENANTHEMA [None]
  - ERYTHEMA [None]
  - EYE DISCHARGE [None]
  - PRURITUS [None]
  - PYREXIA [None]
  - SKIN LESION [None]
